FAERS Safety Report 19959962 (Version 1)
Quarter: 2021Q4

REPORT INFORMATION
  Report Type: Spontaneous
  Country: DE (occurrence: DE)
  Receive Date: 20211015
  Receipt Date: 20211015
  Transmission Date: 20220303
  Serious: Yes (Other)
  Sender: FDA-Public Use
  Company Number: DE-UCBSA-2021047508

PATIENT
  Sex: Male

DRUGS (3)
  1. VIMPAT [Interacting]
     Active Substance: LACOSAMIDE
     Indication: Product used for unknown indication
     Dosage: 400 MG A DAY
     Route: 048
  2. VIMPAT [Interacting]
     Active Substance: LACOSAMIDE
     Dosage: 600 MG A DAY
     Route: 048
  3. METHOTREXATE [Interacting]
     Active Substance: METHOTREXATE
     Indication: Psoriatic arthropathy
     Dosage: UNK, WEEKLY (QW)

REACTIONS (6)
  - Seizure [Unknown]
  - Psoriatic arthropathy [Unknown]
  - Sleep disorder [Unknown]
  - Drug interaction [Unknown]
  - Product use issue [Unknown]
  - Overdose [Unknown]
